FAERS Safety Report 5051085-3 (Version None)
Quarter: 2006Q3

REPORT INFORMATION
  Report Type: 
  Country: None (occurrence: None)
  Receive Date: 20060714
  Receipt Date: 20060515
  Transmission Date: 20061208
  Serious: Yes (Death, Hospitalization)
  Sender: FDA-Public Use
  Company Number: ES-BRISTOL-MYERS SQUIBB COMPANY-13384904

PATIENT
  Age: 69 Year
  Sex: Female

DRUGS (2)
  1. ERBITUX [Suspect]
     Route: 042
     Dates: start: 20050816, end: 20050816
  2. IRINOTECAN [Suspect]
     Dates: start: 20050816, end: 20050816

REACTIONS (6)
  - ANAEMIA [None]
  - DEATH [None]
  - DIARRHOEA [None]
  - GRANULOCYTOPENIA [None]
  - MUCOSAL INFLAMMATION [None]
  - THROMBOCYTOPENIA [None]
